FAERS Safety Report 16923374 (Version 1)
Quarter: 2019Q4

REPORT INFORMATION
  Report Type: Spontaneous
  Country: AU (occurrence: AU)
  Receive Date: 20191016
  Receipt Date: 20191016
  Transmission Date: 20200122
  Serious: Yes (Death)
  Sender: FDA-Public Use
  Company Number: AU-BAYER-2019-181431

PATIENT
  Age: 40 Year
  Sex: Male
  Weight: 50 kg

DRUGS (1)
  1. STIVARGA [Suspect]
     Active Substance: REGORAFENIB
     Indication: HEPATOCELLULAR CARCINOMA
     Dosage: UNK
     Route: 048
     Dates: start: 201901, end: 201905

REACTIONS (5)
  - Postoperative wound infection [Fatal]
  - Spinal cord compression [Fatal]
  - Spinal laminectomy [Fatal]
  - Hepatocellular carcinoma [Fatal]
  - Paraparesis [Fatal]
